FAERS Safety Report 14711371 (Version 1)
Quarter: 2018Q2

REPORT INFORMATION
  Report Type: Spontaneous
  Country: CN (occurrence: CN)
  Receive Date: 20180403
  Receipt Date: 20180403
  Transmission Date: 20180711
  Serious: Yes (Other)
  Sender: FDA-Public Use
  Company Number: CN-PFIZER INC-2018133766

PATIENT
  Age: 62 Year
  Sex: Female
  Weight: 62 kg

DRUGS (3)
  1. TAZOCIN [Suspect]
     Active Substance: PIPERACILLIN SODIUM\TAZOBACTAM SODIUM
     Indication: INFECTION
     Dosage: 4.5 G, 4X/DAY
     Route: 041
     Dates: start: 20180122, end: 20180129
  2. TAKEPRON [Suspect]
     Active Substance: LANSOPRAZOLE
     Indication: HYPERCHLORHYDRIA
     Dosage: 30 MG, 2X/DAY
     Route: 041
     Dates: start: 20180113, end: 20180202
  3. MEDIUM AND LONG CHAIN FAT EMULSION INJECTION [Suspect]
     Active Substance: LIPOSYN (R) INTRAVENOUS FAT EMULSION
     Indication: NUTRITIONAL SUPPLEMENTATION
     Dosage: 250 ML, 1X/DAY
     Route: 041
     Dates: start: 20180119, end: 20180222

REACTIONS (1)
  - Cholestatic liver injury [Recovering/Resolving]

NARRATIVE: CASE EVENT DATE: 20180127
